FAERS Safety Report 7163166-9 (Version None)
Quarter: 2010Q4

REPORT INFORMATION
  Report Type: 
  Country: None (occurrence: None)
  Receive Date: 20101215
  Receipt Date: 20100309
  Transmission Date: 20110411
  Serious: Yes (Other)
  Sender: FDA-Public Use
  Company Number: NO-PFIZER INC-2010030150

PATIENT
  Age: 69 Year
  Sex: Female

DRUGS (10)
  1. LYRICA [Suspect]
     Indication: ANXIETY
     Dosage: 75 MG, EVERY 4 HRS
     Route: 048
     Dates: start: 20090501
  2. SOBRIL [Concomitant]
     Dosage: 10 MG, AS NEEDED
     Route: 048
  3. VENTOLIN [Concomitant]
     Indication: ASTHMA
     Dosage: 2 DF, AS NEEDED
  4. CIPRAMIL [Concomitant]
     Indication: DEPRESSION
     Dosage: 20 MG, 3X/DAY
     Route: 048
  5. PARACET [Concomitant]
     Indication: PAIN
     Dosage: 500 MG, AS NEEDED
  6. VALLERGAN [Concomitant]
     Indication: SLEEP DISORDER
     Dosage: IN ADDITION TO REGULAR MEDICATION
  7. VALLERGAN [Concomitant]
     Route: 048
  8. NEULIN [Concomitant]
     Indication: ASTHMA
     Dosage: 350 MG, 2X/DAY
     Route: 048
  9. UNILOC [Concomitant]
     Indication: HYPERTENSION
     Dosage: 50 MG, 1X/DAY
     Route: 048
  10. ELOCON [Concomitant]
     Dosage: UNK

REACTIONS (1)
  - DRUG DEPENDENCE [None]
